FAERS Safety Report 19441224 (Version 4)
Quarter: 2022Q4

REPORT INFORMATION
  Report Type: Report from Study
  Country: CO (occurrence: CO)
  Receive Date: 20210621
  Receipt Date: 20221215
  Transmission Date: 20230113
  Serious: Yes (Hospitalization)
  Sender: FDA-Public Use
  Company Number: NVSC2021CO123379

PATIENT
  Age: 2 Year
  Sex: Female
  Weight: 14.7 kg

DRUGS (5)
  1. ELTROMBOPAG OLAMINE [Suspect]
     Active Substance: ELTROMBOPAG OLAMINE
     Indication: Immune thrombocytopenia
     Dosage: 25 MG, QD
     Route: 048
     Dates: start: 202105
  2. ELTROMBOPAG OLAMINE [Suspect]
     Active Substance: ELTROMBOPAG OLAMINE
     Dosage: 50 MG/KG, QD
     Route: 048
  3. BECLOMETHASONE DIPROPIONATE [Concomitant]
     Active Substance: BECLOMETHASONE DIPROPIONATE
     Indication: Rhinitis allergic
     Dosage: UNK UNK, QD (1 PUFF)(SINCE 10 DAYS AGO)
  4. BECLOMETHASONE DIPROPIONATE [Concomitant]
     Active Substance: BECLOMETHASONE DIPROPIONATE
     Indication: Hypersensitivity
  5. FERRIC SULFATE [Concomitant]
     Active Substance: FERRIC SULFATE
     Indication: Haemoglobin decreased
     Dosage: 5 MG, QD (SINCE 10 DAYS AGO)
     Route: 048

REACTIONS (6)
  - Platelet count decreased [Unknown]
  - Epistaxis [Unknown]
  - Platelet count abnormal [Unknown]
  - Contusion [Unknown]
  - Petechiae [Unknown]
  - Product availability issue [Unknown]

NARRATIVE: CASE EVENT DATE: 20210527
